FAERS Safety Report 7748764-3 (Version None)
Quarter: 2011Q3

REPORT INFORMATION
  Report Type: 
  Country: None (occurrence: None)
  Receive Date: 20110914
  Receipt Date: 20110903
  Transmission Date: 20111222
  Serious: Yes (Other)
  Sender: FDA-Public Use
  Company Number: AU-PAR PHARMACEUTICAL, INC-2011SCPR003217

PATIENT

DRUGS (4)
  1. DEXAMETHASONE [Suspect]
     Indication: PREMEDICATION
     Dosage: 40 MG, AS PREMEDICATION
     Route: 065
  2. CARBOPLATIN [Suspect]
     Indication: CHEMOTHERAPY
     Dosage: 600 MG (AUC 5), UNK
  3. PACLITAXEL [Suspect]
     Indication: CHEMOTHERAPY
     Dosage: 320 MG (175 MG/M^2), UNKNOWN
  4. DEXAMETHASONE [Suspect]
     Indication: PROPHYLAXIS OF NAUSEA AND VOMITING
     Dosage: 4 MG, FOR 2 DAYS AS ANTIEMETIC
     Route: 065

REACTIONS (2)
  - JOINT SWELLING [None]
  - PYOMYOSITIS [None]
